FAERS Safety Report 4455981-7 (Version None)
Quarter: 2004Q3

REPORT INFORMATION
  Report Type: 
  Country: None (occurrence: None)
  Receive Date: 20040922
  Receipt Date: 20040916
  Transmission Date: 20050211
  Serious: Yes (Death)
  Sender: FDA-Public Use
  Company Number: HU-GLAXOSMITHKLINE-B0345467A

PATIENT
  Age: 64 Year
  Sex: Female

DRUGS (1)
  1. TOPOTECAN [Suspect]
     Indication: OVARIAN CANCER METASTATIC
     Dosage: 2.25MGM2 PER DAY
     Route: 042
     Dates: start: 20040811, end: 20040815

REACTIONS (2)
  - CARDIAC FAILURE [None]
  - CARDIOPULMONARY FAILURE [None]
